FAERS Safety Report 7359079-X (Version None)
Quarter: 2011Q1

REPORT INFORMATION
  Report Type: 
  Country: None (occurrence: None)
  Receive Date: 20110317
  Receipt Date: 20110304
  Transmission Date: 20110831
  Serious: Yes (Other)
  Sender: FDA-Public Use
  Company Number: US-BAYER-201037947NA

PATIENT
  Sex: Female
  Weight: 58.957 kg

DRUGS (7)
  1. IBUPROFEN [Concomitant]
     Dosage: UNK
     Dates: start: 20010501
  2. IBUPROFEN [Concomitant]
     Dosage: UNK
     Dates: start: 20051101
  3. IBUPROFEN [Concomitant]
     Dosage: UNK
     Dates: start: 20060301
  4. YASMIN [Suspect]
     Indication: ORAL CONTRACEPTION
     Dosage: UNK
     Route: 048
     Dates: start: 20080701, end: 20091001
  5. UNCODEABLE ^UNCLASSIFIABLE^ [Concomitant]
     Dosage: UNK
     Dates: start: 20091201
  6. SALSALATE [Concomitant]
     Dosage: UNK
     Dates: start: 20060301
  7. SALSALATE [Concomitant]
     Dosage: UNK
     Dates: start: 20070501

REACTIONS (4)
  - ANXIETY [None]
  - CONVULSION [None]
  - DEPRESSION [None]
  - SYNCOPE [None]
